FAERS Safety Report 6702562-8 (Version None)
Quarter: 2010Q2

REPORT INFORMATION
  Report Type: 
  Country: None (occurrence: None)
  Receive Date: 20100429
  Receipt Date: 20100426
  Transmission Date: 20101027
  Serious: Yes (Other)
  Sender: FDA-Public Use
  Company Number: JP-ASTRAZENECA-2010SE19023

PATIENT
  Sex: Male

DRUGS (1)
  1. CRESTOR [Suspect]
     Indication: DYSLIPIDAEMIA
     Route: 048

REACTIONS (2)
  - BLOOD CREATINE PHOSPHOKINASE INCREASED [None]
  - LIVER FUNCTION TEST ABNORMAL [None]
